FAERS Safety Report 6182216-X (Version None)
Quarter: 2009Q2

REPORT INFORMATION
  Report Type: 
  Country: None (occurrence: None)
  Receive Date: 20090507
  Receipt Date: 20090427
  Transmission Date: 20091009
  Serious: Yes (Life-Threatening, Hospitalization)
  Sender: FDA-Public Use
  Company Number: US-BIOGENIDEC-2007BI003211

PATIENT
  Age: 45 Year
  Sex: Male

DRUGS (2)
  1. AVONEX [Suspect]
     Indication: MULTIPLE SCLEROSIS
     Route: 030
     Dates: start: 20050708, end: 20070125
  2. SOLU-MEDROL [Concomitant]
     Indication: DRUG USE FOR UNKNOWN INDICATION

REACTIONS (7)
  - CHEST PAIN [None]
  - FEEDING DISORDER [None]
  - MULTIPLE SCLEROSIS RELAPSE [None]
  - MYOCARDIAL INFARCTION [None]
  - PNEUMONIA [None]
  - RIB FRACTURE [None]
  - STAPHYLOCOCCAL INFECTION [None]
